FAERS Safety Report 10592897 (Version 1)
Quarter: 2014Q4

REPORT INFORMATION
  Report Type: Spontaneous
  Country: US (occurrence: US)
  Receive Date: 20141119
  Receipt Date: 20141119
  Transmission Date: 20150529
  Serious: Yes (Other)
  Sender: FDA-Public Use
  Company Number: US-AMGEN-USASP2014087942

PATIENT
  Age: 88 Year
  Sex: Female
  Weight: 39 kg

DRUGS (1)
  1. NPLATE [Suspect]
     Active Substance: ROMIPLOSTIM
     Indication: PRODUCT USED FOR UNKNOWN INDICATION
     Dosage: 500 MUG, QWK
     Route: 065

REACTIONS (2)
  - Drug ineffective [Unknown]
  - Platelet count abnormal [Unknown]
